FAERS Safety Report 25587410 (Version 1)
Quarter: 2025Q3

REPORT INFORMATION
  Report Type: Spontaneous
  Country: US (occurrence: US)
  Receive Date: 20250721
  Receipt Date: 20250721
  Transmission Date: 20251020
  Serious: No
  Sender: MYLAN
  Company Number: US-MYLANLABS-2025M1059639

PATIENT
  Sex: Male

DRUGS (8)
  1. LYRICA [Suspect]
     Active Substance: PREGABALIN
     Indication: Product used for unknown indication
     Dosage: 50 MILLIGRAM, QD (1 CAPSULE, EVERY MORNING (BEFORE BREAKFAST) FOR 7 DAYS)
  2. LYRICA [Suspect]
     Active Substance: PREGABALIN
     Dosage: 50 MILLIGRAM, QD (1 CAPSULE, EVERY MORNING (BEFORE BREAKFAST) FOR 7 DAYS)
  3. LYRICA [Suspect]
     Active Substance: PREGABALIN
     Dosage: 50 MILLIGRAM, QD (1 CAPSULE, EVERY MORNING (BEFORE BREAKFAST) FOR 7 DAYS)
     Route: 048
  4. LYRICA [Suspect]
     Active Substance: PREGABALIN
     Dosage: 50 MILLIGRAM, QD (1 CAPSULE, EVERY MORNING (BEFORE BREAKFAST) FOR 7 DAYS)
     Route: 048
  5. LYRICA [Suspect]
     Active Substance: PREGABALIN
     Dosage: 50 MILLIGRAM, BID (2 TIMES DAILY FOR 14 DAYS)
  6. LYRICA [Suspect]
     Active Substance: PREGABALIN
     Dosage: 50 MILLIGRAM, BID (2 TIMES DAILY FOR 14 DAYS)
  7. LYRICA [Suspect]
     Active Substance: PREGABALIN
     Dosage: 50 MILLIGRAM, BID (2 TIMES DAILY FOR 14 DAYS)
     Route: 048
  8. LYRICA [Suspect]
     Active Substance: PREGABALIN
     Dosage: 50 MILLIGRAM, BID (2 TIMES DAILY FOR 14 DAYS)
     Route: 048

REACTIONS (1)
  - Off label use [Unknown]
